FAERS Safety Report 4448060-6 (Version None)
Quarter: 2004Q3

REPORT INFORMATION
  Report Type: 
  Country: None (occurrence: None)
  Receive Date: 20040913
  Receipt Date: 20040903
  Transmission Date: 20050211
  Serious: Yes (Other)
  Sender: FDA-Public Use
  Company Number: FR-BRISTOL-MYERS SQUIBB COMPANY-12692521

PATIENT
  Age: 59 Year
  Sex: Male

DRUGS (3)
  1. APROVEL TABS [Suspect]
     Route: 048
     Dates: start: 20010101
  2. SINTROM [Suspect]
     Route: 048
     Dates: start: 20030101
  3. AVLOCARDYL [Suspect]
     Route: 048
     Dates: start: 20030101

REACTIONS (6)
  - EYELID OEDEMA [None]
  - GENERALISED ERYTHEMA [None]
  - GINGIVAL PAIN [None]
  - HEPATITIS CHOLESTATIC [None]
  - OEDEMA PERIPHERAL [None]
  - PALPITATIONS [None]
